FAERS Safety Report 19125820 (Version 1)
Quarter: 2021Q2

REPORT INFORMATION
  Report Type: Spontaneous
  Country: US (occurrence: US)
  Receive Date: 20210412
  Receipt Date: 20210412
  Transmission Date: 20210717
  Serious: No
  Sender: FDA-Public Use
  Company Number: US-SA-2021SA112266

PATIENT
  Age: 56 Year
  Sex: Male

DRUGS (1)
  1. FLOMAX [Suspect]
     Active Substance: TAMSULOSIN HYDROCHLORIDE
     Dosage: 0.4 MG
     Dates: start: 20210316, end: 20210318

REACTIONS (3)
  - Sleep disorder [Unknown]
  - Fatigue [Unknown]
  - Spontaneous penile erection [Unknown]
